FAERS Safety Report 4639532-X (Version None)
Quarter: 2005Q2

REPORT INFORMATION
  Report Type: 
  Country: None (occurrence: None)
  Receive Date: 20050419
  Receipt Date: 20050407
  Transmission Date: 20051028
  Serious: Yes (Death, Other)
  Sender: FDA-Public Use
  Company Number: 2004-06-1207

PATIENT
  Age: 1 Day
  Weight: 0.4 kg

DRUGS (3)
  1. REBETOL [Suspect]
     Indication: HEPATITIS C
     Dosage: 1200 MG QD ORAL
     Route: 048
     Dates: start: 20040101
  2. COPEGUS [Suspect]
     Indication: HEPATITIS C
     Dosage: ?800 MG QD
     Dates: start: 20040305, end: 20040101
  3. PEG-INTRON [Suspect]
     Indication: HEPATITIS C
     Dosage: SUBCUTANEOUS
     Route: 058
     Dates: start: 20040308

REACTIONS (7)
  - DRUG EXPOSURE DURING PREGNANCY [None]
  - FOETAL GROWTH RETARDATION [None]
  - IMMATURE RESPIRATORY SYSTEM [None]
  - PRE-ECLAMPSIA [None]
  - PREMATURE BABY [None]
  - THROMBOCYTOPENIA [None]
  - TRANSMISSION OF DRUG VIA SEMEN [None]
